FAERS Safety Report 5886326-3 (Version None)
Quarter: 2008Q3

REPORT INFORMATION
  Report Type: 
  Country: None (occurrence: None)
  Receive Date: 20080917
  Receipt Date: 20080912
  Transmission Date: 20090109
  Serious: Yes (Other)
  Sender: FDA-Public Use
  Company Number: B0514234A

PATIENT
  Age: 37 Year

DRUGS (2)
  1. PAXIL [Suspect]
     Indication: DRUG USE FOR UNKNOWN INDICATION
     Dosage: 30MG PER DAY
     Route: 048
     Dates: start: 20080304, end: 20080317
  2. ROHYPNOL [Concomitant]

REACTIONS (5)
  - EUPHORIC MOOD [None]
  - EYE DISORDER [None]
  - HYPERHIDROSIS [None]
  - IRRITABILITY [None]
  - SEROTONIN SYNDROME [None]
